FAERS Safety Report 14804543 (Version 6)
Quarter: 2018Q3

REPORT INFORMATION
  Report Type: Report from Study
  Country: FR (occurrence: FR)
  Receive Date: 20180425
  Receipt Date: 20180901
  Transmission Date: 20181010
  Serious: Yes (Other)
  Sender: FDA-Public Use
  Company Number: FR-AUROBINDO-AUR-APL-2018-020567

PATIENT
  Age: 20 Year
  Sex: Female

DRUGS (4)
  1. ARIPIPRAZOLE TABLETS [Suspect]
     Active Substance: ARIPIPRAZOLE
     Indication: NEURODEVELOPMENTAL DISORDER
     Dosage: 10 MILLIGRAM, ONCE A DAY
     Route: 065
  2. RISPERIDONE. [Interacting]
     Active Substance: RISPERIDONE
     Indication: NEURODEVELOPMENTAL DISORDER
  3. RISPERIDONE. [Interacting]
     Active Substance: RISPERIDONE
     Indication: AUTISM SPECTRUM DISORDER
     Dosage: UNK
     Route: 065
  4. ARIPIPRAZOLE TABLETS [Suspect]
     Active Substance: ARIPIPRAZOLE
     Indication: AUTISM SPECTRUM DISORDER

REACTIONS (8)
  - Aggression [Unknown]
  - Paradoxical drug reaction [Unknown]
  - Intentional self-injury [Unknown]
  - Drug interaction [Unknown]
  - Agitation [Unknown]
  - Scar [Unknown]
  - Product use in unapproved indication [Unknown]
  - Anxiety [Unknown]
